FAERS Safety Report 19716708 (Version 3)
Quarter: 2021Q3

REPORT INFORMATION
  Report Type: Spontaneous
  Country: US (occurrence: US)
  Receive Date: 20210818
  Receipt Date: 20210910
  Transmission Date: 20211014
  Serious: Yes (Other)
  Sender: FDA-Public Use
  Company Number: US-009507513-2108USA004059

PATIENT
  Sex: Female

DRUGS (1)
  1. BELSOMRA [Suspect]
     Active Substance: SUVOREXANT
     Dosage: 10 MG ONE TABLET ONCE AT NIGHT
     Route: 048

REACTIONS (4)
  - Multiple sclerosis [Unknown]
  - Product blister packaging issue [Unknown]
  - Product dose omission issue [Unknown]
  - Product storage error [Unknown]
